FAERS Safety Report 6253925-9 (Version None)
Quarter: 2009Q3

REPORT INFORMATION
  Report Type: 
  Country: None (occurrence: None)
  Receive Date: 20090701
  Receipt Date: 20090701
  Transmission Date: 20100115
  Serious: Yes (Other)
  Sender: FDA-Public Use
  Company Number: None

PATIENT
  Age: 27 Year
  Sex: Male
  Weight: 3.62 kg

DRUGS (2)
  1. AMOXICILLIN [Suspect]
     Indication: URINARY TRACT INFECTION
     Dosage: 95MG ONCE PO
     Route: 048
     Dates: start: 20090629, end: 20090630
  2. CEFTRIAXONE [Concomitant]

REACTIONS (4)
  - DRUG DISPENSING ERROR [None]
  - DRUG NAME CONFUSION [None]
  - MEDICATION ERROR [None]
  - WRONG DRUG ADMINISTERED [None]
